FAERS Safety Report 5096242-5 (Version None)
Quarter: 2006Q3

REPORT INFORMATION
  Report Type: 
  Country: None (occurrence: None)
  Receive Date: 20060905
  Receipt Date: 20060822
  Transmission Date: 20061208
  Serious: Yes (Death)
  Sender: FDA-Public Use
  Company Number: US-NOVOPROD-256281

PATIENT
  Age: 56 Year
  Sex: Male

DRUGS (1)
  1. NOVOLOG [Suspect]
     Indication: DIABETES MELLITUS
     Dosage: SLIDING SCALE, PRN
     Route: 058
     Dates: start: 20060601

REACTIONS (1)
  - DEATH [None]
